FAERS Safety Report 9312680 (Version 1)
Quarter: 2013Q2

REPORT INFORMATION
  Report Type: Spontaneous
  Country: DE (occurrence: DE)
  Receive Date: 20130528
  Receipt Date: 20130528
  Transmission Date: 20140414
  Serious: Yes (Hospitalization)
  Sender: FDA-Public Use
  Company Number: DE-GLAXOSMITHKLINE-D0074821A

PATIENT
  Age: 51 Year
  Sex: Female
  Weight: 52 kg

DRUGS (1)
  1. BENLYSTA [Suspect]
     Indication: SYSTEMIC LUPUS ERYTHEMATOSUS
     Dosage: 520MG EVERY TWO WEEKS
     Route: 042
     Dates: start: 20111209, end: 20120106

REACTIONS (4)
  - Systemic lupus erythematosus [Unknown]
  - Myelopathy [Recovered/Resolved]
  - Myelitis [Recovered/Resolved]
  - Spinal cord paralysis [Unknown]
